FAERS Safety Report 4339436-6 (Version None)
Quarter: 2004Q2

REPORT INFORMATION
  Report Type: 
  Country: None (occurrence: None)
  Receive Date: 20040415
  Receipt Date: 20040406
  Transmission Date: 20050107
  Serious: Yes (Hospitalization)
  Sender: FDA-Public Use
  Company Number: US-GLAXOSMITHKLINE-A0506432A

PATIENT
  Sex: Female

DRUGS (9)
  1. LOTRONEX [Suspect]
     Indication: DRUG USE FOR UNKNOWN INDICATION
     Dosage: 1MG PER DAY
     Route: 048
     Dates: start: 20040116, end: 20040228
  2. SYNTHROID [Concomitant]
  3. ARTHROTEC [Concomitant]
  4. ZOCOR [Concomitant]
  5. PREVACID [Concomitant]
  6. PROZAC [Concomitant]
  7. DIOVAN [Concomitant]
  8. TOPROL-XL [Concomitant]
  9. NEURONTIN [Concomitant]

REACTIONS (3)
  - FULL BLOOD COUNT DECREASED [None]
  - INTESTINAL HAEMORRHAGE [None]
  - MYOCARDIAL INFARCTION [None]
